FAERS Safety Report 4897939-X (Version None)
Quarter: 2006Q1

REPORT INFORMATION
  Report Type: 
  Country: None (occurrence: None)
  Receive Date: 20060130
  Receipt Date: 20060117
  Transmission Date: 20060701
  Serious: Yes (Death, Hospitalization)
  Sender: FDA-Public Use
  Company Number: B0407602A

PATIENT
  Age: 81 Year
  Sex: Male

DRUGS (1)
  1. ALKERAN [Suspect]
     Dosage: UNKNOWN
     Route: 065
     Dates: start: 19940301

REACTIONS (5)
  - ACUTE MYELOID LEUKAEMIA [None]
  - ANOREXIA [None]
  - FATIGUE [None]
  - MARROW HYPERPLASIA [None]
  - PNEUMONIA [None]
